FAERS Safety Report 11746561 (Version 3)
Quarter: 2016Q1

REPORT INFORMATION
  Report Type: Spontaneous
  Country: AU (occurrence: AU)
  Receive Date: 20151117
  Receipt Date: 20160125
  Transmission Date: 20160525
  Serious: Yes (Hospitalization, Other)
  Sender: FDA-Public Use
  Company Number: AU-MUNDIPHARMA DS AND PHARMACOVIGILANCE-GBR-2015-0031987

PATIENT
  Age: 87 Year
  Sex: Female

DRUGS (5)
  1. NORSPAN [Suspect]
     Active Substance: BUPRENORPHINE
     Indication: NEURALGIA
     Dosage: 10 MCG, Q1H
     Route: 062
     Dates: end: 20160104
  2. NORSPAN [Suspect]
     Active Substance: BUPRENORPHINE
     Dosage: 5 MCG, Q1H
     Route: 062
  3. NORSPAN [Suspect]
     Active Substance: BUPRENORPHINE
     Indication: ARTHRALGIA
     Dosage: 5 MCG, Q1H
     Route: 062
  4. PANADEINE                          /00116401/ [Concomitant]
     Active Substance: ACETAMINOPHEN\CODEINE PHOSPHATE
     Dosage: 1 TABLET, NOCTE
  5. NORSPAN [Suspect]
     Active Substance: BUPRENORPHINE
     Dosage: 10 MCG, Q1H
     Route: 062

REACTIONS (10)
  - Balance disorder [Unknown]
  - Incorrect drug administration duration [Unknown]
  - Inadequate analgesia [Not Recovered/Not Resolved]
  - Somnolence [Unknown]
  - Fall [Unknown]
  - Speech disorder [Unknown]
  - Fracture [Unknown]
  - Drug withdrawal syndrome [Recovered/Resolved]
  - Joint dislocation [Unknown]
  - Seizure [Unknown]
